FAERS Safety Report 4636533-2 (Version None)
Quarter: 2005Q2

REPORT INFORMATION
  Report Type: 
  Country: None (occurrence: None)
  Receive Date: 20050415
  Receipt Date: 20050404
  Transmission Date: 20051028
  Serious: Yes (Other)
  Sender: FDA-Public Use
  Company Number: SE-GLAXOSMITHKLINE-B0374645B

PATIENT
  Sex: Female

DRUGS (2)
  1. LAMICTAL [Suspect]
     Indication: EPILEPSY
     Dosage: 200MG PER DAY
     Route: 048
     Dates: start: 19991122
  2. FOLACIN [Concomitant]
     Indication: VITAMIN SUPPLEMENTATION
     Dosage: 5MG PER DAY
     Route: 048
     Dates: start: 19980101

REACTIONS (1)
  - ABORTION SPONTANEOUS [None]
